FAERS Safety Report 4562931-1 (Version None)
Quarter: 2005Q1

REPORT INFORMATION
  Report Type: 
  Country: None (occurrence: None)
  Receive Date: 20050124
  Receipt Date: 20050110
  Transmission Date: 20050727
  Serious: Yes (Hospitalization)
  Sender: FDA-Public Use
  Company Number: 2005CG00088

PATIENT
  Age: 76 Year
  Sex: Female

DRUGS (7)
  1. ATACAND [Suspect]
     Dosage: 3 DF DAILY PO
     Route: 048
     Dates: end: 20041206
  2. AUGMENTIN '125' [Suspect]
     Dosage: 6 DF DAILY PO
     Route: 048
     Dates: start: 20041126, end: 20040101
  3. ALLOPURINOL [Suspect]
     Dosage: 300 MG DAILY PO
     Route: 048
     Dates: end: 20041203
  4. TEMESTA [Suspect]
     Dosage: 2.5 MG DAILY PO
     Route: 048
     Dates: end: 20041203
  5. LIPANTHYL ^FOURNIER^ [Suspect]
     Dosage: 200 MG DAILY PO
     Route: 048
     Dates: end: 20041203
  6. LASILIX [Concomitant]
  7. INSULIN MIXTARD [Concomitant]

REACTIONS (1)
  - TOXIC SKIN ERUPTION [None]
